FAERS Safety Report 16067284 (Version 2)
Quarter: 2019Q2

REPORT INFORMATION
  Report Type: Spontaneous
  Country: VN (occurrence: VN)
  Receive Date: 20190313
  Receipt Date: 20190613
  Transmission Date: 20190711
  Serious: Yes (Other)
  Sender: FDA-Public Use
  Company Number: VN-JNJFOC-20181208058

PATIENT
  Age: 4 Decade
  Sex: Female

DRUGS (1)
  1. FUGACAR [Suspect]
     Active Substance: MEBENDAZOLE
     Indication: TOXOCARIASIS
     Dosage: PRESCRIBED 28 TABLETS FOR 14 DAYS
     Route: 048
     Dates: start: 20181112, end: 20181127

REACTIONS (5)
  - Exposure during pregnancy [Unknown]
  - Product use in unapproved indication [Unknown]
  - Off label use [Unknown]
  - Abortion spontaneous [Unknown]
  - Prescribed overdose [Unknown]

NARRATIVE: CASE EVENT DATE: 20181113
